FAERS Safety Report 7561558-7 (Version None)
Quarter: 2011Q2

REPORT INFORMATION
  Report Type: 
  Country: None (occurrence: None)
  Receive Date: 20110621
  Receipt Date: 20110304
  Transmission Date: 20111010
  Serious: No
  Sender: FDA-Public Use
  Company Number: US-ASTRAZENECA-2011SE12156

PATIENT
  Sex: Female

DRUGS (2)
  1. BUDESONIDE [Suspect]
     Route: 055
  2. PERFOROMIST [Suspect]
     Dosage: 20 MCG PER 2 ML
     Route: 065

REACTIONS (2)
  - DRY MOUTH [None]
  - DYSPHONIA [None]
